FAERS Safety Report 8343197-3 (Version None)
Quarter: 2012Q2

REPORT INFORMATION
  Report Type: 
  Country: None (occurrence: None)
  Receive Date: 20120508
  Receipt Date: 20120504
  Transmission Date: 20120825
  Serious: Yes (Other)
  Sender: FDA-Public Use
  Company Number: US-PFIZER INC-2012110902

PATIENT
  Sex: Female

DRUGS (4)
  1. LYRICA [Suspect]
     Dosage: 150 MG, 2X/DAY
  2. SIMVASTATIN [Concomitant]
     Dosage: UNK
  3. HUMULIN R [Concomitant]
     Dosage: UNK
  4. HUMULIN N [Concomitant]
     Dosage: UNK

REACTIONS (1)
  - BREAST CANCER [None]
